FAERS Safety Report 7394139-9 (Version None)
Quarter: 2011Q2

REPORT INFORMATION
  Report Type: 
  Country: None (occurrence: None)
  Receive Date: 20110405
  Receipt Date: 20110329
  Transmission Date: 20111010
  Serious: Yes (Hospitalization)
  Sender: FDA-Public Use
  Company Number: JP-ABBOTT-10P-087-0688228-00

PATIENT
  Sex: Female
  Weight: 47 kg

DRUGS (9)
  1. HUMIRA [Suspect]
     Indication: CROHN'S DISEASE
     Route: 058
     Dates: start: 20101109, end: 20101109
  2. HUMIRA [Suspect]
     Route: 058
     Dates: start: 20101123, end: 20101123
  3. ENTERAL NUTRIENT [Concomitant]
     Indication: CROHN'S DISEASE
  4. HUMIRA [Suspect]
     Dosage: WITHIN A CLINICAL TRIAL STUDY
  5. CLOSTRIDIUM BUTYRICUM [Concomitant]
     Indication: DISBACTERIOSIS
     Route: 048
  6. BROTIZOLAM [Concomitant]
     Indication: PROPHYLAXIS
  7. FAMOTIDINE [Concomitant]
     Indication: PROPHYLAXIS AGAINST GASTROINTESTINAL ULCER
     Route: 048
  8. BROTIZOLAM [Concomitant]
     Indication: INSOMNIA
  9. MAGNESIUM OXIDE [Concomitant]
     Indication: CONSTIPATION PROPHYLAXIS
     Route: 048

REACTIONS (1)
  - INTESTINAL FISTULA INFECTION [None]
